FAERS Safety Report 6848297-2 (Version None)
Quarter: 2010Q3

REPORT INFORMATION
  Report Type: 
  Country: None (occurrence: None)
  Receive Date: 20100714
  Receipt Date: 20100629
  Transmission Date: 20110219
  Serious: Yes (Other)
  Sender: FDA-Public Use
  Company Number: 1000014735

PATIENT
  Age: 20 Year
  Sex: Female

DRUGS (6)
  1. ESCITALOPRAM [Suspect]
     Indication: SOCIAL PHOBIA
     Dosage: 5 MG (1, IN 1 D), ORAL
     Route: 048
     Dates: start: 20091009, end: 20091110
  2. ESCITALOPRAM [Suspect]
     Indication: SOCIAL PHOBIA
     Dosage: 10 MG, ORAL, 5 MG, ORAL
     Route: 048
     Dates: start: 20091111, end: 20100108
  3. ESCITALOPRAM [Suspect]
     Indication: SOCIAL PHOBIA
     Dosage: 10 MG, ORAL, 5 MG, ORAL
     Route: 048
     Dates: start: 20100109
  4. TRAZODONE [Concomitant]
  5. RISPERIDON [Concomitant]
  6. ARIPIPRAZOLE [Concomitant]

REACTIONS (1)
  - HYPOMANIA [None]
